FAERS Safety Report 8532173-3 (Version None)
Quarter: 2012Q3

REPORT INFORMATION
  Report Type: 
  Country: None (occurrence: None)
  Receive Date: 20120723
  Receipt Date: 20120718
  Transmission Date: 20120928
  Serious: Yes (Life-Threatening, Hospitalization)
  Sender: FDA-Public Use
  Company Number: JP-GLAXOSMITHKLINE-B0812925A

PATIENT
  Sex: Female

DRUGS (15)
  1. ALPRAZOLAM [Concomitant]
     Indication: ANXIETY
     Dosage: .4MG PER DAY
     Route: 048
     Dates: end: 20120612
  2. AIROCOOL [Concomitant]
     Indication: ANGINA PECTORIS
     Dosage: 40MG PER DAY
     Route: 048
     Dates: end: 20120612
  3. UNIPHYL [Concomitant]
     Indication: ASTHMA
     Dosage: 400MG PER DAY
     Route: 048
     Dates: end: 20120612
  4. ASVERIN [Concomitant]
     Route: 048
  5. VALTREX [Suspect]
     Indication: HERPES ZOSTER
     Dosage: 3000MG PER DAY
     Route: 048
     Dates: start: 20120609, end: 20120612
  6. DOGMATYL [Concomitant]
     Route: 065
  7. BUNAZOSIN HYDROCHLORIDE [Concomitant]
     Indication: HYPERTENSION
     Route: 048
     Dates: end: 20120612
  8. SINGULAIR [Concomitant]
     Indication: ASTHMA
     Dosage: 10MG PER DAY
     Route: 048
     Dates: end: 20120612
  9. MUCOSTA [Concomitant]
     Indication: ABDOMINAL PAIN UPPER
     Dosage: 300MG PER DAY
     Route: 048
     Dates: start: 20120609, end: 20120612
  10. ALPRAZOLAM [Concomitant]
     Dosage: .4MG PER DAY
     Route: 048
     Dates: start: 20120629
  11. CANDESARTAN CILEXETIL [Concomitant]
     Dosage: 8MG PER DAY
     Route: 048
     Dates: start: 20120618
  12. ASPENON [Concomitant]
     Indication: ARRHYTHMIA
     Dosage: 40MG PER DAY
     Route: 048
     Dates: end: 20120612
  13. DEPAS [Concomitant]
     Indication: ANXIETY
     Dosage: 1.5MG PER DAY
     Route: 048
     Dates: start: 20120609, end: 20120612
  14. CANDESARTAN CILEXETIL [Concomitant]
     Indication: HYPERTENSION
     Dosage: 12MG PER DAY
     Route: 048
     Dates: end: 20120612
  15. ABILIT [Concomitant]
     Indication: DEPRESSION
     Dosage: 150MG PER DAY
     Route: 048
     Dates: end: 20120612

REACTIONS (12)
  - FEELING ABNORMAL [None]
  - SPLEEN SCAN ABNORMAL [None]
  - CONFUSIONAL STATE [None]
  - BLOOD CREATININE INCREASED [None]
  - KIDNEY ENLARGEMENT [None]
  - BLOOD URIC ACID INCREASED [None]
  - RENAL FAILURE ACUTE [None]
  - RENAL CYST [None]
  - ASTHENIA [None]
  - DECREASED APPETITE [None]
  - URINARY RETENTION [None]
  - BLOOD UREA INCREASED [None]
